FAERS Safety Report 15400769 (Version 1)
Quarter: 2018Q3

REPORT INFORMATION
  Report Type: Spontaneous
  Country: US (occurrence: US)
  Receive Date: 20180913
  Receipt Date: 20180913
  Transmission Date: 20181010
  Serious: Yes (Life-Threatening, Hospitalization)
  Sender: FDA-Public Use
  Company Number: None

PATIENT
  Age: 87 Year
  Sex: Female
  Weight: 85 kg

DRUGS (2)
  1. WARFARIN [Suspect]
     Active Substance: WARFARIN
     Indication: ATRIAL FIBRILLATION
     Route: 048
     Dates: end: 20180521
  2. AMIODARONE 200MG BID [Concomitant]

REACTIONS (6)
  - Contusion [None]
  - Haematocrit decreased [None]
  - Haemoglobin decreased [None]
  - Gastrointestinal haemorrhage [None]
  - Fatigue [None]
  - International normalised ratio increased [None]

NARRATIVE: CASE EVENT DATE: 20180521
